FAERS Safety Report 8131253-4 (Version None)
Quarter: 2012Q1

REPORT INFORMATION
  Report Type: 
  Country: None (occurrence: None)
  Receive Date: 20120213
  Receipt Date: 20120208
  Transmission Date: 20120608
  Serious: Yes (Death, Hospitalization)
  Sender: FDA-Public Use
  Company Number: GB-GENZYME-CLOF-1001905

PATIENT

DRUGS (1)
  1. EVOLTRA [Suspect]
     Indication: ACUTE MYELOID LEUKAEMIA
     Dosage: UNK
     Route: 065
     Dates: start: 20070903, end: 20070907

REACTIONS (4)
  - PYREXIA [None]
  - ACUTE MYELOID LEUKAEMIA [None]
  - NAUSEA [None]
  - NEUTROPENIA [None]
